FAERS Safety Report 7090653-4 (Version None)
Quarter: 2010Q4

REPORT INFORMATION
  Report Type: 
  Country: None (occurrence: None)
  Receive Date: 20101109
  Receipt Date: 20091012
  Transmission Date: 20110411
  Serious: No
  Sender: FDA-Public Use
  Company Number: US-KINGPHARMUSA00001-K200901262

PATIENT
  Sex: Female
  Weight: 65.76 kg

DRUGS (3)
  1. FLECTOR [Suspect]
     Indication: PAIN IN EXTREMITY
     Dosage: 1/2 PATCH, EVERY 12 HOURS
     Route: 061
     Dates: start: 20091007, end: 20091010
  2. SIMVASTATIN [Concomitant]
     Dosage: 40 MG, QD
     Route: 048
  3. LUMIGAN [Concomitant]
     Indication: GLAUCOMA
     Dosage: 1 GTT OU, QHS
     Route: 047

REACTIONS (1)
  - APPLICATION SITE HAEMATOMA [None]
